FAERS Safety Report 16983483 (Version 1)
Quarter: 2019Q4

REPORT INFORMATION
  Report Type: Spontaneous
  Country: US (occurrence: US)
  Receive Date: 20191030
  Receipt Date: 20191030
  Transmission Date: 20200122
  Serious: Yes (Other)
  Sender: FDA-Public Use
  Company Number: None

PATIENT
  Age: 66 Year
  Sex: Female

DRUGS (2)
  1. IV CONTRAST DYE [Concomitant]
     Active Substance: UNSPECIFIED INGREDIENT
     Dates: start: 20191030, end: 20191030
  2. ALTEPLASE. [Suspect]
     Active Substance: ALTEPLASE
     Indication: CEREBROVASCULAR ACCIDENT
     Dosage: ?          OTHER FREQUENCY:ONE TIME;?
     Route: 042
     Dates: start: 20191030, end: 20191030

REACTIONS (1)
  - Angioedema [None]

NARRATIVE: CASE EVENT DATE: 20191030
